FAERS Safety Report 6401155-X (Version None)
Quarter: 2009Q4

REPORT INFORMATION
  Report Type: 
  Country: None (occurrence: None)
  Receive Date: 20091015
  Receipt Date: 20070921
  Transmission Date: 20100525
  Serious: Yes (Disabling)
  Sender: FDA-Public Use
  Company Number: US-ASTRAZENECA-2006UW08499

PATIENT
  Sex: Female
  Weight: 89.8 kg

DRUGS (12)
  1. SEROQUEL [Suspect]
     Route: 048
     Dates: start: 20040709
  2. RISPERDAL [Concomitant]
     Dosage: 150 MCG, 2 G QHS
     Route: 048
     Dates: start: 20040709, end: 20060101
  3. ZOLOFT [Concomitant]
     Route: 048
     Dates: start: 20040709, end: 20060101
  4. WELLBUTRIN SR [Concomitant]
     Route: 048
     Dates: start: 20060627
  5. LIPITOR [Concomitant]
     Dates: start: 20050731
  6. NEURONTIN [Concomitant]
     Dates: start: 20050731
  7. METFORMIN HYDROCHLORIDE [Concomitant]
     Dosage: 500 BID
     Dates: start: 20051216
  8. LISINOPRIL [Concomitant]
     Dosage: 6.5 DAILY
     Dates: start: 20051216
  9. LEVOTHROID [Concomitant]
     Dates: start: 20050731
  10. TAGAMET [Concomitant]
     Dates: start: 20050731
  11. VISTARIL [Concomitant]
     Dates: start: 20050731
  12. AVANDIA [Concomitant]
     Dosage: 4 BID
     Dates: start: 20051216

REACTIONS (1)
  - ILL-DEFINED DISORDER [None]
